FAERS Safety Report 26117711 (Version 1)
Quarter: 2025Q4

REPORT INFORMATION
  Report Type: Spontaneous
  Country: US (occurrence: None)
  Receive Date: 20251203
  Receipt Date: 20251203
  Transmission Date: 20260118
  Serious: No
  Sender: FDA-CTU
  Company Number: None

PATIENT
  Age: 26 Year
  Sex: Male
  Weight: 102 kg

DRUGS (2)
  1. ALYFTREK [Suspect]
     Active Substance: DEUTIVACAFTOR\TEZACAFTOR\VANZACAFTOR
     Indication: Cystic fibrosis
     Dosage: DAILY ORAL ?
     Route: 048
     Dates: start: 20251110, end: 20251201
  2. CREON [Concomitant]
     Active Substance: PANCRELIPASE AMYLASE\PANCRELIPASE LIPASE\PANCRELIPASE PROTEASE

REACTIONS (3)
  - Steatorrhoea [None]
  - Diarrhoea [None]
  - Defaecation urgency [None]

NARRATIVE: CASE EVENT DATE: 20251117
